FAERS Safety Report 16633747 (Version 1)
Quarter: 2019Q3

REPORT INFORMATION
  Report Type: Spontaneous
  Country: US (occurrence: US)
  Receive Date: 20190725
  Receipt Date: 20190725
  Transmission Date: 20191004
  Serious: No
  Sender: FDA-Public Use
  Company Number: None

PATIENT
  Age: 42 Year
  Sex: Male
  Weight: 90 kg

DRUGS (1)
  1. OZEMPIC [Suspect]
     Active Substance: SEMAGLUTIDE
     Indication: DIABETES MELLITUS
     Dosage: ?          OTHER FREQUENCY:1 TIME A WEEK;OTHER ROUTE:INJECTION IN STOMACH AREA?

REACTIONS (3)
  - Anger [None]
  - Aggression [None]
  - Mood swings [None]

NARRATIVE: CASE EVENT DATE: 20190706
